FAERS Safety Report 21173772 (Version 1)
Quarter: 2022Q3

REPORT INFORMATION
  Report Type: Spontaneous
  Country: US (occurrence: US)
  Receive Date: 20220804
  Receipt Date: 20220804
  Transmission Date: 20221027
  Serious: No
  Sender: FDA-Public Use
  Company Number: US-PERRIGO-22US002985

PATIENT
  Sex: Female
  Weight: 58.05 kg

DRUGS (5)
  1. LORATADINE [Suspect]
     Active Substance: LORATADINE
     Indication: Rhinorrhoea
     Dosage: 10 MG, QD
     Route: 048
     Dates: start: 2021, end: 20220221
  2. LORATADINE [Suspect]
     Active Substance: LORATADINE
     Indication: Sneezing
  3. LORATADINE [Suspect]
     Active Substance: LORATADINE
     Indication: Perennial allergy
  4. LORATADINE [Suspect]
     Active Substance: LORATADINE
     Indication: Lacrimation increased
  5. VITAMINS NOS [Concomitant]
     Active Substance: VITAMINS
     Indication: Supplementation therapy
     Dosage: UNK
     Route: 065

REACTIONS (2)
  - Condition aggravated [Recovering/Resolving]
  - Drug ineffective [Unknown]

NARRATIVE: CASE EVENT DATE: 20210101
